FAERS Safety Report 17802652 (Version 3)
Quarter: 2020Q3

REPORT INFORMATION
  Report Type: Report from Study
  Country: US (occurrence: US)
  Receive Date: 20200519
  Receipt Date: 20200924
  Transmission Date: 20201102
  Serious: Yes (Death)
  Sender: FDA-Public Use
  Company Number: US-PFIZER INC-2020195955

PATIENT

DRUGS (2)
  1. GENTAMICIN SULFATE. [Suspect]
     Active Substance: GENTAMICIN SULFATE
     Indication: ESCHERICHIA INFECTION
     Dosage: UNK
  2. AMPICILLIN [Suspect]
     Active Substance: AMPICILLIN
     Indication: ESCHERICHIA INFECTION
     Dosage: UNK

REACTIONS (1)
  - Pathogen resistance [Fatal]
